FAERS Safety Report 17881876 (Version 2)
Quarter: 2021Q4

REPORT INFORMATION
  Report Type: Report from Study
  Country: US (occurrence: US)
  Receive Date: 20200610
  Receipt Date: 20211224
  Transmission Date: 20220303
  Serious: Yes (Hospitalization)
  Sender: FDA-Public Use
  Company Number: US-VERTEX PHARMACEUTICALS-2020-012452

PATIENT
  Age: 22 Year
  Sex: Male

DRUGS (2)
  1. KALYDECO [Suspect]
     Active Substance: IVACAFTOR
     Indication: Cystic fibrosis
     Dosage: 150 MG (BOTTLE)
     Route: 048
     Dates: start: 20120312, end: 20161121
  2. KALYDECO [Suspect]
     Active Substance: IVACAFTOR
     Dosage: 150 MG (BLISTER)
     Route: 048
     Dates: start: 20190415, end: 20200917

REACTIONS (1)
  - Pneumonia [Unknown]

NARRATIVE: CASE EVENT DATE: 20200201
